FAERS Safety Report 6377329-3 (Version None)
Quarter: 2009Q3

REPORT INFORMATION
  Report Type: 
  Country: None (occurrence: None)
  Receive Date: 20090923
  Receipt Date: 20090923
  Transmission Date: 20100115
  Serious: No
  Sender: FDA-Public Use
  Company Number: None

PATIENT
  Age: 65 Year

DRUGS (13)
  1. GLYBURIDE [Suspect]
     Indication: DIABETES MELLITUS
     Dosage: 5 MG PO DAILY
     Route: 048
  2. LANTUS [Suspect]
     Indication: TYPE 1 DIABETES MELLITUS
     Dosage: 160 UNITS SQ BID
     Route: 058
  3. ALPRAZOLAM [Concomitant]
  4. GABAPENTIN [Concomitant]
  5. FUROSEMIDE [Concomitant]
  6. MORPHINE [Concomitant]
  7. CLOPIDOGREL [Concomitant]
  8. ZOLPIDEM [Concomitant]
  9. DULOXETINE [Concomitant]
  10. TIZANIDINE HCL [Concomitant]
  11. ONDASETRON [Concomitant]
  12. SPIRONOLACTONE [Concomitant]
  13. METOPROLOL [Concomitant]

REACTIONS (5)
  - ASTHENIA [None]
  - CREATININE RENAL CLEARANCE DECREASED [None]
  - LOSS OF CONSCIOUSNESS [None]
  - SYNCOPE [None]
  - TREMOR [None]
